FAERS Safety Report 7077006-X (Version None)
Quarter: 2010Q4

REPORT INFORMATION
  Report Type: 
  Country: None (occurrence: None)
  Receive Date: 20101101
  Receipt Date: 20101022
  Transmission Date: 20110411
  Serious: Yes (Other)
  Sender: FDA-Public Use
  Company Number: HR-ABBOTT-10P-216-0680648-00

PATIENT
  Age: 36 Year
  Sex: Male

DRUGS (4)
  1. VALPROIC ACID [Suspect]
     Indication: BIPOLAR DISORDER
  2. CLOZAPINE [Interacting]
     Indication: PRODUCT USED FOR UNKNOWN INDICATION
  3. PROMAZINE HYDROCHLORIDE [Interacting]
     Indication: BIPOLAR DISORDER
  4. DIAZEPAM [Concomitant]
     Indication: PRODUCT USED FOR UNKNOWN INDICATION

REACTIONS (2)
  - DRUG INTERACTION [None]
  - NEUROLEPTIC MALIGNANT SYNDROME [None]
